FAERS Safety Report 18616775 (Version 1)
Quarter: 2020Q4

REPORT INFORMATION
  Report Type: Spontaneous
  Country: US (occurrence: US)
  Receive Date: 20201215
  Receipt Date: 20201215
  Transmission Date: 20210114
  Serious: No
  Sender: FDA-Public Use
  Company Number: US-AUROBINDO-AUR-APL-2020-030311

PATIENT
  Sex: Female

DRUGS (1)
  1. MIRTAZAPINE TABLETS 15 MG [Suspect]
     Active Substance: MIRTAZAPINE
     Indication: SLEEP DISORDER
     Dosage: 15 MILLIGRAM (STARTED ONE AND HALF MONTHS AGO)
     Route: 065

REACTIONS (10)
  - Sitting disability [Unknown]
  - Irritability [Unknown]
  - Headache [Unknown]
  - Confusional state [Unknown]
  - Product use in unapproved indication [Unknown]
  - Anxiety [Unknown]
  - Depressed mood [Unknown]
  - Restlessness [Unknown]
  - Nervousness [Unknown]
  - Tremor [Unknown]
